FAERS Safety Report 10021194 (Version 1)
Quarter: 2014Q1

REPORT INFORMATION
  Report Type: Spontaneous
  Country: US (occurrence: None)
  Receive Date: 20140318
  Receipt Date: 20140318
  Transmission Date: 20141002
  Serious: No
  Sender: FDA-Public Use
  Company Number: None

PATIENT
  Age: 71 Year
  Sex: Male
  Weight: 68.04 kg

DRUGS (1)
  1. XARELTO [Suspect]
     Indication: ATRIAL FLUTTER
     Dosage: 1 PILL
     Route: 048
     Dates: start: 20140123, end: 20140210

REACTIONS (1)
  - Haematuria [None]
